FAERS Safety Report 8966550 (Version 1)
Quarter: 2012Q4

REPORT INFORMATION
  Report Type: 
  Country: US (occurrence: US)
  Receive Date: 20121217
  Receipt Date: 20121217
  Transmission Date: 20130627
  Serious: No
  Sender: FDA-Public Use
  Company Number: US-BAYER-2012-128005

PATIENT
  Age: 67 Year
  Sex: Male

DRUGS (5)
  1. LEVITRA [Suspect]
     Indication: ERECTILE DYSFUNCTION
     Dosage: 20 mg, PRN
     Route: 048
     Dates: start: 2004, end: 20121203
  2. ALEVE [Concomitant]
  3. BENICAR [Concomitant]
  4. CLONIDINE [Concomitant]
  5. METOPROLOL [Concomitant]

REACTIONS (2)
  - Drug ineffective [Recovered/Resolved]
  - Drug ineffective [Recovered/Resolved]
